FAERS Safety Report 6779327-4 (Version None)
Quarter: 2010Q2

REPORT INFORMATION
  Report Type: 
  Country: None (occurrence: None)
  Receive Date: 20100618
  Receipt Date: 20100614
  Transmission Date: 20101027
  Serious: Yes (Life-Threatening, Hospitalization)
  Sender: FDA-Public Use
  Company Number: FR-SANOFI-AVENTIS-2010SA033927

PATIENT
  Age: 47 Year
  Sex: Female

DRUGS (17)
  1. LOVENOX [Suspect]
     Route: 058
     Dates: start: 20100428, end: 20100429
  2. SUFENTA PRESERVATIVE FREE [Suspect]
     Route: 042
     Dates: start: 20100429, end: 20100429
  3. PROPOFOL ^FRESENIUS^ [Suspect]
     Route: 042
     Dates: start: 20100429, end: 20100429
  4. ATRACURIUM [Suspect]
     Route: 042
     Dates: start: 20100429, end: 20100429
  5. AUGMENTIN '125' [Suspect]
     Route: 042
     Dates: start: 20100429, end: 20100429
  6. KETAMINE HCL [Suspect]
     Route: 042
     Dates: start: 20100429, end: 20100429
  7. SUPRANE [Suspect]
     Route: 055
     Dates: start: 20100429, end: 20100429
  8. NAROPIN [Suspect]
     Route: 050
     Dates: start: 20100429, end: 20100429
  9. NEURONTIN [Suspect]
     Route: 048
     Dates: start: 20100428, end: 20100429
  10. BETADINE [Suspect]
     Route: 003
     Dates: start: 20100428, end: 20100501
  11. BETADINE [Suspect]
     Route: 067
     Dates: start: 20100429, end: 20100429
  12. NORMACOL [Suspect]
     Route: 054
     Dates: start: 20100428, end: 20100428
  13. PERFALGAN [Suspect]
     Route: 042
     Dates: start: 20100429, end: 20100501
  14. ACUPAN [Suspect]
     Route: 042
     Dates: start: 20100429, end: 20100430
  15. MORPHINE SULFATE [Suspect]
     Route: 042
     Dates: start: 20100429, end: 20100429
  16. EPHEDRINE [Suspect]
     Route: 042
     Dates: start: 20100429, end: 20100429
  17. LEXOMIL [Concomitant]
     Route: 048

REACTIONS (4)
  - ACUTE PULMONARY OEDEMA [None]
  - HAEMATURIA [None]
  - OLIGURIA [None]
  - RENAL FAILURE ACUTE [None]
